FAERS Safety Report 10643309 (Version 1)
Quarter: 2014Q4

REPORT INFORMATION
  Report Type: Spontaneous
  Country: US (occurrence: None)
  Receive Date: 20141128
  Receipt Date: 20141128
  Transmission Date: 20150529
  Serious: Yes (Other)
  Sender: FDA-Public Use
  Company Number: PHEH2013US022332

PATIENT
  Age: 50 Year
  Sex: Male

DRUGS (5)
  1. VALIUM [Suspect]
     Active Substance: DIAZEPAM
  2. TEKTURNA [Suspect]
     Active Substance: ALISKIREN HEMIFUMARATE
  3. DIOVAN [Suspect]
     Active Substance: VALSARTAN
  4. AMLODIPINE BESYLATE. [Suspect]
     Active Substance: AMLODIPINE BESYLATE
  5. AVAPRO [Suspect]
     Active Substance: IRBESARTAN

REACTIONS (16)
  - Anxiety [None]
  - Dysphagia [None]
  - Red blood cell count decreased [None]
  - Haematocrit decreased [None]
  - Nausea [None]
  - Nerve injury [None]
  - Muscle injury [None]
  - Haemoglobin decreased [None]
  - Dizziness [None]
  - Pharyngeal oedema [None]
  - Laryngeal oedema [None]
  - Neurogenic hypertension [None]
  - Glomerular filtration rate decreased [None]
  - Blood erythropoietin decreased [None]
  - Blood creatinine increased [None]
  - Drug ineffective [None]
